FAERS Safety Report 9126759 (Version 3)
Quarter: 2013Q3

REPORT INFORMATION
  Report Type: Spontaneous
  Country: US (occurrence: US)
  Receive Date: 20130122
  Receipt Date: 20130808
  Transmission Date: 20140515
  Serious: Yes (Other)
  Sender: FDA-Public Use
  Company Number: US-PFIZER INC-2013023848

PATIENT
  Age: 64 Year
  Sex: Female

DRUGS (5)
  1. LYRICA [Suspect]
     Indication: FIBROMYALGIA
     Dosage: 75 MG, 2X/DAY
     Dates: start: 2013
  2. LYRICA [Suspect]
     Indication: ARTHRALGIA
  3. LYRICA [Suspect]
     Indication: BACK PAIN
  4. TRAMADOL HYDROCHLORIDE [Concomitant]
     Indication: ARTHRALGIA
     Dosage: 100 MG, 3X/DAY
  5. TRAMADOL HYDROCHLORIDE [Concomitant]
     Indication: BACK PAIN

REACTIONS (5)
  - Spinal compression fracture [Unknown]
  - Fall [Unknown]
  - Fracture [Unknown]
  - Malaise [Unknown]
  - Speech disorder [Unknown]
